FAERS Safety Report 15294784 (Version 1)
Quarter: 2018Q3

REPORT INFORMATION
  Report Type: Spontaneous
  Country: US (occurrence: US)
  Receive Date: 20180820
  Receipt Date: 20180820
  Transmission Date: 20181010
  Serious: No
  Sender: FDA-Public Use
  Company Number: US-BAYER-2018-155545

PATIENT
  Age: 80 Year
  Sex: Female
  Weight: 62 kg

DRUGS (1)
  1. MIRALAX [Suspect]
     Active Substance: POLYETHYLENE GLYCOL 3350
     Indication: GASTROINTESTINAL DISORDER
     Dosage: 1?2 TESPOON DAILY
     Route: 048
     Dates: start: 20180813

REACTIONS (1)
  - Drug ineffective [Unknown]
